FAERS Safety Report 4566880-4 (Version None)
Quarter: 2005Q1

REPORT INFORMATION
  Report Type: 
  Country: None (occurrence: None)
  Receive Date: 20050201
  Receipt Date: 20020620
  Transmission Date: 20050727
  Serious: Yes (Other)
  Sender: FDA-Public Use
  Company Number: US-BRISTOL-MYERS SQUIBB COMPANY-11925468

PATIENT
  Age: 20 Year
  Sex: Male

DRUGS (1)
  1. STADOL [Suspect]
     Dosage: 10MG/ML X 2.5, 10MG/ML X 3, 10MG/ML X 5, 10MG/ML X 6
     Route: 045
     Dates: start: 19961201, end: 20001101

REACTIONS (2)
  - DEPENDENCE [None]
  - DRUG WITHDRAWAL SYNDROME [None]
